FAERS Safety Report 12199286 (Version 1)
Quarter: 2016Q1

REPORT INFORMATION
  Report Type: Spontaneous
  Country: US (occurrence: None)
  Receive Date: 20160321
  Receipt Date: 20160321
  Transmission Date: 20160526
  Serious: No
  Sender: FDA-Public Use
  Company Number: None

PATIENT
  Age: 19 Year
  Sex: Male
  Weight: 90.72 kg

DRUGS (1)
  1. ZOSYN [Suspect]
     Active Substance: PIPERACILLIN SODIUM\TAZOBACTAM SODIUM
     Indication: PERITONEAL ABSCESS
     Dosage: 4.5 GM TID INTRAVENOUS
     Route: 042
     Dates: start: 20160315, end: 20160315

REACTIONS (3)
  - Discomfort [None]
  - Infusion related reaction [None]
  - Pruritus [None]

NARRATIVE: CASE EVENT DATE: 20160315
